FAERS Safety Report 15765345 (Version 6)
Quarter: 2021Q1

REPORT INFORMATION
  Report Type: Report from Study
  Country: US (occurrence: US)
  Receive Date: 20181227
  Receipt Date: 20210226
  Transmission Date: 20210419
  Serious: Yes (Hospitalization, Other)
  Sender: FDA-Public Use
  Company Number: US-SA-2018SA393794

PATIENT
  Age: 53 Year
  Sex: Female

DRUGS (4)
  1. ALEMTUZUMAB [Suspect]
     Active Substance: ALEMTUZUMAB
     Dosage: 12 MG, QD
     Route: 041
     Dates: start: 20160725, end: 20160729
  2. ALEMTUZUMAB [Suspect]
     Active Substance: ALEMTUZUMAB
     Indication: MULTIPLE SCLEROSIS
     Dosage: 12 MG, QD
     Route: 041
     Dates: start: 20180730, end: 20180801
  3. ALEMTUZUMAB [Suspect]
     Active Substance: ALEMTUZUMAB
     Dosage: 12 MG
     Route: 041
     Dates: start: 20170725, end: 20170726
  4. ALEMTUZUMAB [Suspect]
     Active Substance: ALEMTUZUMAB
     Dosage: 12 MG
     Route: 041
     Dates: start: 20170728, end: 20170728

REACTIONS (15)
  - Contusion [Recovered/Resolved]
  - Decreased appetite [Not Recovered/Not Resolved]
  - Immune thrombocytopenia [Recovered/Resolved]
  - Petechiae [Recovered/Resolved]
  - Secondary progressive multiple sclerosis [Not Recovered/Not Resolved]
  - Blister [Recovered/Resolved]
  - Autoimmune disorder [Unknown]
  - Weight decreased [Not Recovered/Not Resolved]
  - Platelet count decreased [Unknown]
  - Alopecia [Not Recovered/Not Resolved]
  - Blood thyroid stimulating hormone decreased [Not Recovered/Not Resolved]
  - Onychomycosis [Recovered/Resolved]
  - Hyperthyroidism [Not Recovered/Not Resolved]
  - Visual impairment [Unknown]
  - Night sweats [Not Recovered/Not Resolved]

NARRATIVE: CASE EVENT DATE: 201812
